FAERS Safety Report 5777576-5 (Version None)
Quarter: 2008Q2

REPORT INFORMATION
  Report Type: 
  Country: None (occurrence: None)
  Receive Date: 20080618
  Receipt Date: 20080606
  Transmission Date: 20081010
  Serious: Yes (Other)
  Sender: FDA-Public Use
  Company Number: US-PFIZER INC-2008049557

PATIENT
  Sex: Female
  Weight: 59.1 kg

DRUGS (3)
  1. CHANTIX [Suspect]
     Indication: SMOKING CESSATION THERAPY
     Route: 048
     Dates: start: 20080501, end: 20080501
  2. VITAMINS [Concomitant]
  3. MINERAL SUPPLEMENTS [Concomitant]

REACTIONS (2)
  - GINGIVITIS [None]
  - PERIODONTAL DISEASE [None]
